FAERS Safety Report 10058542 (Version 1)
Quarter: 2014Q2

REPORT INFORMATION
  Report Type: Spontaneous
  Country: FI (occurrence: FI)
  Receive Date: 20140404
  Receipt Date: 20140404
  Transmission Date: 20141212
  Serious: No
  Sender: FDA-Public Use
  Company Number: FI-JNJFOC-20140315672

PATIENT
  Sex: 0

DRUGS (1)
  1. FENTANYL [Suspect]
     Indication: PAIN MANAGEMENT
     Route: 062

REACTIONS (5)
  - Ultrasound scan abnormal [Unknown]
  - Off label use [Unknown]
  - Electroencephalogram abnormal [Unknown]
  - Nervousness [Unknown]
  - Restlessness [Unknown]
